FAERS Safety Report 24016000 (Version 3)
Quarter: 2025Q3

REPORT INFORMATION
  Report Type: Spontaneous
  Country: GB (occurrence: GB)
  Receive Date: 20240626
  Receipt Date: 20250807
  Transmission Date: 20251021
  Serious: Yes (Hospitalization)
  Sender: NOVARTIS
  Company Number: GB-002147023-NVSC2024GB131309

PATIENT
  Age: 87 Year
  Sex: Male
  Weight: 82.3 kg

DRUGS (3)
  1. LEQVIO [Suspect]
     Active Substance: INCLISIRAN SODIUM
     Indication: Arteriosclerosis
     Route: 058
     Dates: start: 20240219
  2. LEQVIO [Suspect]
     Active Substance: INCLISIRAN SODIUM
     Indication: Cardiovascular disorder
  3. AMOXICILLIN\CLAVULANATE POTASSIUM [Suspect]
     Active Substance: AMOXICILLIN\CLAVULANATE POTASSIUM
     Indication: Osteomyelitis
     Route: 048

REACTIONS (6)
  - Drug-induced liver injury [Recovering/Resolving]
  - Liver function test abnormal [Recovering/Resolving]
  - Jaundice [Unknown]
  - Nausea [Unknown]
  - Diarrhoea [Unknown]
  - Gastrooesophageal reflux disease [Unknown]

NARRATIVE: CASE EVENT DATE: 20240522
